FAERS Safety Report 4414132-5 (Version None)
Quarter: 2004Q3

REPORT INFORMATION
  Report Type: 
  Country: None (occurrence: None)
  Receive Date: 20040729
  Receipt Date: 20040716
  Transmission Date: 20050211
  Serious: Yes (Hospitalization)
  Sender: FDA-Public Use
  Company Number: 8489

PATIENT
  Age: 49 Year
  Sex: Female

DRUGS (12)
  1. MORPHINE [Suspect]
  2. VECURONIUM BROMIDE [Suspect]
     Indication: HYPOTONIA
     Dosage: 6 MG Q1HR IV
     Route: 042
  3. SUCCINYLCHOLINE CHLORIDE [Suspect]
     Indication: HYPOTONIA
  4. HYDROCORTISONE [Suspect]
     Dosage: 400 MG FREQ UNK IV
     Route: 042
  5. ETOMIDATE [Concomitant]
  6. PROPOFOL [Concomitant]
  7. MIDAZOLAM [Concomitant]
  8. HEPARIN [Concomitant]
  9. RANITIDINE [Concomitant]
  10. ADRENALINE [Concomitant]
  11. ALBUTEROL SULFATE [Concomitant]
  12. IPRATROPIUM BROMIDE [Concomitant]

REACTIONS (5)
  - HAEMODIALYSIS [None]
  - OLIGURIA [None]
  - RENAL FAILURE [None]
  - RESPIRATORY GAS EXCHANGE DISORDER [None]
  - RHABDOMYOLYSIS [None]
